FAERS Safety Report 25736487 (Version 1)
Quarter: 2025Q3

REPORT INFORMATION
  Report Type: Spontaneous
  Country: US (occurrence: US)
  Receive Date: 20250828
  Receipt Date: 20250828
  Transmission Date: 20251021
  Serious: Yes (Death, Hospitalization, Other)
  Sender: JOHNSON AND JOHNSON
  Company Number: US-JNJFOC-20250831110

PATIENT
  Age: 65 Year
  Sex: Male

DRUGS (1)
  1. CARVYKTI [Suspect]
     Active Substance: CILTACABTAGENE AUTOLEUCEL
     Indication: Plasma cell myeloma
     Route: 042
     Dates: start: 20240318, end: 20240318

REACTIONS (7)
  - Staphylococcal bacteraemia [Fatal]
  - Pneumonia aspiration [Unknown]
  - Immune effector cell-associated neurotoxicity syndrome [Recovering/Resolving]
  - Cytokine release syndrome [Not Recovered/Not Resolved]
  - Parkinsonism [Unknown]
  - Dysphagia [Unknown]
  - Myopathy [Unknown]

NARRATIVE: CASE EVENT DATE: 20240322
